FAERS Safety Report 8496985-7 (Version None)
Quarter: 2012Q3

REPORT INFORMATION
  Report Type: 
  Country: None (occurrence: None)
  Receive Date: 20120709
  Receipt Date: 20120604
  Transmission Date: 20120928
  Serious: No
  Sender: FDA-Public Use
  Company Number: US-AMGEN-USASP2012035163

PATIENT
  Age: 50 Year
  Sex: Female

DRUGS (3)
  1. ENBREL [Suspect]
     Indication: PSORIASIS
  2. ENBREL [Suspect]
     Indication: PSORIATIC ARTHROPATHY
     Dosage: 50 MG, QWK
     Dates: start: 20100202
  3. NEUROTIN                           /01003001/ [Concomitant]
     Dosage: UNK

REACTIONS (15)
  - BURNING SENSATION [None]
  - PROTEIN URINE [None]
  - PRURITUS [None]
  - BLOOD URINE [None]
  - FEELING COLD [None]
  - GLOSSODYNIA [None]
  - PSORIATIC ARTHROPATHY [None]
  - DIZZINESS [None]
  - FATIGUE [None]
  - NAUSEA [None]
  - RASH [None]
  - VITAMIN D DECREASED [None]
  - ERYTHEMA [None]
  - EYE DISCHARGE [None]
  - DRY EYE [None]
